FAERS Safety Report 4863474-8 (Version None)
Quarter: 2005Q4

REPORT INFORMATION
  Report Type: 
  Country: None (occurrence: None)
  Receive Date: 20051222
  Receipt Date: 20050221
  Transmission Date: 20060501
  Serious: No
  Sender: FDA-Public Use
  Company Number: US-GLAXOSMITHKLINE-A0546371A

PATIENT
  Sex: Female

DRUGS (3)
  1. FLONASE [Suspect]
     Indication: SINUS DISORDER
     Route: 045
     Dates: start: 20041228
  2. MOEXIPRIL HCL [Concomitant]
     Dosage: 15MG UNKNOWN
     Route: 048
  3. LIPITOR [Concomitant]
     Dosage: 20MG UNKNOWN
     Route: 048

REACTIONS (2)
  - DRUG INEFFECTIVE [None]
  - FEELING ABNORMAL [None]
